FAERS Safety Report 21493421 (Version 1)
Quarter: 2022Q4

REPORT INFORMATION
  Report Type: Spontaneous
  Country: FR (occurrence: FR)
  Receive Date: 20221021
  Receipt Date: 20221021
  Transmission Date: 20230113
  Serious: Yes (Life-Threatening, Hospitalization)
  Sender: FDA-Public Use
  Company Number: None

PATIENT
  Age: 73 Year
  Sex: Male
  Weight: 81 kg

DRUGS (12)
  1. CLOPIDOGREL [Interacting]
     Active Substance: CLOPIDOGREL BISULFATE
     Indication: Acute coronary syndrome
     Dosage: UNIT DOSE: 75MG; FREQ TIME: 1DAY; DURATION: 36DAYS
     Route: 065
     Dates: start: 20220723, end: 20220828
  2. KARDEGIC [Interacting]
     Active Substance: ASPIRIN DL-LYSINE
     Indication: Acute coronary syndrome
     Dosage: KARDEGIC 75 MG, POWDER FOR ORAL SOLUTION IN SACHET-DOSE; UNIT DOSE: 1 DF; FREQ TIME: 1DAY; DURATION:
     Dates: start: 20220723, end: 20220828
  3. BEVACIZUMAB [Suspect]
     Active Substance: BEVACIZUMAB
     Indication: Hereditary haemorrhagic telangiectasia
     Dosage: UNIT DOSE: 1DF; FREQ TIME:1MONTHS; DURATION: 3YEARS
     Dates: start: 201908, end: 20220822
  4. NITROGLYCERIN [Concomitant]
     Active Substance: NITROGLYCERIN
     Indication: Product used for unknown indication
     Dosage: UNIT DOSE: 1DF; FREQ TIME: 1 AS REQUIRED; THERAPY START DATE: ASKU
     Dates: end: 20220828
  5. CALCIDOSE [Concomitant]
     Indication: Product used for unknown indication
     Dosage: THERAPY START DATE : ASKU
     Dates: end: 20220828
  6. ACETAMINOPHEN [Concomitant]
     Active Substance: ACETAMINOPHEN
     Indication: Product used for unknown indication
     Dosage: UNIT DOSE: 1G; FREQ TIME: 1DAY; THERAPY START DATE : ASKU
     Dates: end: 20220828
  7. ATORVASTATIN [Concomitant]
     Active Substance: ATORVASTATIN
     Indication: Product used for unknown indication
     Dosage: UNIT DOSE: 80MG; FREQ TIME: 1DAY; THERAPY START DATE : ASKU
  8. POTASSIUM CHLORIDE [Concomitant]
     Active Substance: POTASSIUM CHLORIDE
     Indication: Product used for unknown indication
     Dosage: UNIT DOSE: 1200MG; FREQ TIME: 1DAY; THERAPY START DATE : ASKU
     Dates: end: 20220828
  9. LACTULOSE [Concomitant]
     Active Substance: LACTULOSE
     Indication: Product used for unknown indication
     Dosage: UNIT DOSE: 10G ; FREQ TIME: 1DAY; THERAPY START DATE : ASKU
  10. ESOMEPRAZOLE [Concomitant]
     Active Substance: ESOMEPRAZOLE
     Indication: Product used for unknown indication
     Dosage: UNIT DOSE: 40MG; FREQ TIME: 1DAY; THERAPY START DATE: ASKU
     Dates: end: 20220828
  11. FOLIC ACID [Concomitant]
     Active Substance: FOLIC ACID
     Indication: Product used for unknown indication
     Dosage: UNIT DOSE: 10MG; FREQ TIME: 1DAY; THERAPY START DATE: ASKU; STRENGTH: 5MG
     Dates: end: 20220828
  12. FUROSEMIDE [Concomitant]
     Active Substance: FUROSEMIDE
     Indication: Product used for unknown indication
     Dosage: UNIT DOSE: 40MG; FREQ TIME: 1DAY; THERAPY START DATE : ASKU

REACTIONS (3)
  - Shock haemorrhagic [Recovered/Resolved]
  - Haemorrhage [Recovered/Resolved]
  - Drug interaction [Unknown]

NARRATIVE: CASE EVENT DATE: 20220801
